FAERS Safety Report 11767834 (Version 1)
Quarter: 2015Q4

REPORT INFORMATION
  Report Type: Spontaneous
  Country: BR (occurrence: BR)
  Receive Date: 20151123
  Receipt Date: 20151123
  Transmission Date: 20160304
  Serious: Yes (Death)
  Sender: FDA-Public Use
  Company Number: BR-ASTELLAS-2015US043342

PATIENT
  Age: 57 Year
  Sex: Female

DRUGS (1)
  1. MICAFUNGIN [Suspect]
     Active Substance: MICAFUNGIN
     Indication: FUNGAEMIA
     Route: 065

REACTIONS (1)
  - Drug ineffective for unapproved indication [Fatal]
